FAERS Safety Report 16684435 (Version 2)
Quarter: 2019Q3

REPORT INFORMATION
  Report Type: Report from Study
  Country: NL (occurrence: NL)
  Receive Date: 20190808
  Receipt Date: 20190820
  Transmission Date: 20191004
  Serious: Yes (Hospitalization, Other)
  Sender: FDA-Public Use
  Company Number: NL-GILEAD-2019-0420611

PATIENT
  Age: 58 Year
  Sex: Male
  Weight: 88.5 kg

DRUGS (34)
  1. COTRIMOXAZOL [Concomitant]
     Active Substance: SULFAMETHOXAZOLE\TRIMETHOPRIM
     Dosage: 480,MG,DAILY
     Route: 048
     Dates: start: 20190711
  2. MOVICOLON [Concomitant]
     Active Substance: POLYETHYLENE GLYCOL 3350\POTASSIUM CHLORIDE\SODIUM BICARBONATE\SODIUM CHLORIDE
     Dosage: 1,OTHER,AS NECESSARY
     Route: 048
     Dates: start: 20190725
  3. MEROPENEM. [Concomitant]
     Active Substance: MEROPENEM
     Dosage: 1000,MG,THREE TIMES DAILY
     Route: 042
     Dates: start: 20190719, end: 20190722
  4. ALGELDRATE;MAGNESIUM HYDROXIDE [Concomitant]
     Dosage: 15,ML,DAILY
     Route: 048
     Dates: start: 20190713, end: 20190713
  5. METOCLOPRAMIDE. [Concomitant]
     Active Substance: METOCLOPRAMIDE
     Dosage: 10,MG,DAILY
     Route: 048
     Dates: start: 20190716, end: 20190716
  6. MIDAZOLAM [Concomitant]
     Active Substance: MIDAZOLAM HYDROCHLORIDE
     Dosage: 1,OTHER,AS NECESSARY
     Route: 045
     Dates: start: 20190717
  7. OXYCODON [Concomitant]
     Active Substance: OXYCODONE
     Dosage: 5,MG,AS NECESSARY
     Route: 048
     Dates: start: 20190711
  8. VALACICLOVIR [Concomitant]
     Active Substance: VALACYCLOVIR HYDROCHLORIDE
     Dosage: 500,MG,TWICE DAILY
     Route: 048
     Dates: start: 20190711, end: 20190723
  9. PARACETAMOL [Concomitant]
     Active Substance: ACETAMINOPHEN
     Dosage: 1000,MG,FOUR TIMES DAILY
     Route: 048
     Dates: start: 20190730
  10. FLUDARABINE [Suspect]
     Active Substance: FLUDARABINE PHOSPHATE
     Indication: BONE MARROW CONDITIONING REGIMEN
     Dosage: 30
     Route: 042
     Dates: start: 20190713, end: 20190713
  11. OXYCODON [Concomitant]
     Active Substance: OXYCODONE
     Dosage: 5,MG,AS NECESSARY
     Route: 048
     Dates: start: 20190711, end: 20190723
  12. VALACICLOVIR [Concomitant]
     Active Substance: VALACYCLOVIR HYDROCHLORIDE
     Dosage: 500,MG,TWICE DAILY
     Route: 048
     Dates: start: 20190711
  13. MOVICOLON [Concomitant]
     Active Substance: POLYETHYLENE GLYCOL 3350\POTASSIUM CHLORIDE\SODIUM BICARBONATE\SODIUM CHLORIDE
     Dosage: 1,OTHER,AS NECESSARY
     Route: 048
     Dates: start: 20190711
  14. PARACETAMOL [Concomitant]
     Active Substance: ACETAMINOPHEN
     Dosage: 1000,MG,FOUR TIMES DAILY
     Route: 048
     Dates: start: 20190711
  15. METOCLOPRAMIDE. [Concomitant]
     Active Substance: METOCLOPRAMIDE
     Dosage: 10,MG,AS NECESSARY
     Route: 048
     Dates: start: 20190717, end: 20190722
  16. LEVETIRACETAM. [Concomitant]
     Active Substance: LEVETIRACETAM
     Dosage: 750,MG,TWICE DAILY
     Route: 048
     Dates: start: 20190717, end: 20190723
  17. PARACETAMOL [Concomitant]
     Active Substance: ACETAMINOPHEN
     Dosage: 1000,MG,FOUR TIMES DAILY
     Route: 048
     Dates: start: 20190711, end: 20190723
  18. ONDANSETRON [Concomitant]
     Active Substance: ONDANSETRON
     Dosage: 4,MG,TWICE DAILY
     Route: 042
     Dates: start: 20190722, end: 20190722
  19. LEVETIRACETAM. [Concomitant]
     Active Substance: LEVETIRACETAM
     Dosage: 750,MG,TWICE DAILY
     Route: 048
     Dates: start: 20190726, end: 20190726
  20. PARACETAMOL [Concomitant]
     Active Substance: ACETAMINOPHEN
     Dosage: 1000,MG,FOUR TIMES DAILY
     Route: 054
     Dates: start: 20190723, end: 20190728
  21. METOCLOPRAMIDE. [Concomitant]
     Active Substance: METOCLOPRAMIDE
     Dosage: 10,MG,THREE TIMES DAILY
     Route: 048
     Dates: start: 20190722, end: 20190723
  22. AXICABTAGENE CILOLEUCEL [Suspect]
     Active Substance: AXICABTAGENE CILOLEUCEL
     Indication: DIFFUSE LARGE B-CELL LYMPHOMA
     Dosage: 68
     Route: 042
     Dates: start: 20190718, end: 20190718
  23. FLUDARABINE [Suspect]
     Active Substance: FLUDARABINE PHOSPHATE
     Dosage: 30
     Route: 042
     Dates: start: 20190715, end: 20190715
  24. PARACETAMOL [Concomitant]
     Active Substance: ACETAMINOPHEN
     Dosage: 1000,MG,ONCE
     Route: 048
     Dates: start: 20190718, end: 20190718
  25. METOCLOPRAMIDE. [Concomitant]
     Active Substance: METOCLOPRAMIDE
     Dosage: 10,MG,THREE TIMES DAILY
     Route: 054
     Dates: start: 20190723, end: 20190726
  26. PANTOPRAZOL [PANTOPRAZOLE] [Concomitant]
     Active Substance: PANTOPRAZOLE
     Dosage: 40,MG,DAILY
     Route: 048
     Dates: start: 20190714
  27. LACTULOSE. [Concomitant]
     Active Substance: LACTULOSE
     Dosage: 15,ML,DAILY
     Route: 048
     Dates: start: 20190717, end: 20190717
  28. LACTULOSE. [Concomitant]
     Active Substance: LACTULOSE
     Dosage: 15,ML,AS NECESSARY
     Route: 048
     Dates: start: 20190718, end: 20190723
  29. CLEMASTINE [Concomitant]
     Active Substance: CLEMASTINE
     Dosage: 2,MG,ONCE
     Route: 042
     Dates: start: 20190718, end: 20190718
  30. CYCLOPHOSPHAMIDE. [Suspect]
     Active Substance: CYCLOPHOSPHAMIDE
     Indication: BONE MARROW CONDITIONING REGIMEN
     Dosage: 500
     Route: 042
     Dates: start: 20190713, end: 20190715
  31. OXYCODON [Concomitant]
     Active Substance: OXYCODONE
     Dosage: 10,MG,TWICE DAILY
     Route: 048
     Dates: start: 20190730
  32. ONDANSETRON [Concomitant]
     Active Substance: ONDANSETRON
     Dosage: 4,MG,AS NECESSARY
     Route: 042
     Dates: start: 20190722, end: 20190727
  33. METOCLOPRAMIDE. [Concomitant]
     Active Substance: METOCLOPRAMIDE
     Dosage: 10,MG,DAILY
     Route: 042
     Dates: start: 20190723, end: 20190723
  34. LEVETIRACETAM. [Concomitant]
     Active Substance: LEVETIRACETAM
     Dosage: 750,MG,TWICE DAILY
     Route: 042
     Dates: start: 20190723, end: 20190723

REACTIONS (2)
  - Encephalopathy [Unknown]
  - Femoral neck fracture [Not Recovered/Not Resolved]

NARRATIVE: CASE EVENT DATE: 20190722
